FAERS Safety Report 18734610 (Version 10)
Quarter: 2021Q4

REPORT INFORMATION
  Report Type: Spontaneous
  Country: CZ (occurrence: CZ)
  Receive Date: 20210113
  Receipt Date: 20211025
  Transmission Date: 20220304
  Serious: Yes (Hospitalization, Other)
  Sender: FDA-Public Use
  Company Number: NVSC2021CZ004535

PATIENT
  Age: 45 Year
  Sex: Male

DRUGS (16)
  1. CARBAMAZEPINE [Suspect]
     Active Substance: CARBAMAZEPINE
     Indication: Psychogenic seizure
     Dosage: UNK
     Route: 065
  2. CARBAMAZEPINE [Suspect]
     Active Substance: CARBAMAZEPINE
     Indication: Epilepsy
  3. VALPROATE [Suspect]
     Active Substance: VALPROIC ACID
     Indication: Psychogenic seizure
     Dosage: UNK
     Route: 065
  4. VALPROATE [Suspect]
     Active Substance: VALPROIC ACID
     Indication: Epilepsy
  5. VALPROATE [Suspect]
     Active Substance: VALPROIC ACID
     Indication: Depression
  6. ESLICARBAZEPINE [Suspect]
     Active Substance: ESLICARBAZEPINE
     Indication: Psychogenic seizure
     Dosage: UNK
     Route: 065
  7. ESLICARBAZEPINE [Suspect]
     Active Substance: ESLICARBAZEPINE
     Indication: Epilepsy
  8. LEVETIRACETAM [Suspect]
     Active Substance: LEVETIRACETAM
     Indication: Psychogenic seizure
     Dosage: UNK
     Route: 065
  9. LEVETIRACETAM [Suspect]
     Active Substance: LEVETIRACETAM
     Indication: Epilepsy
  10. LEVETIRACETAM [Suspect]
     Active Substance: LEVETIRACETAM
     Indication: Depression
  11. LAMOTRIGINE [Concomitant]
     Active Substance: LAMOTRIGINE
     Indication: Seizure
     Dosage: 400 MILLIGRAM, DAILY
     Route: 065
  12. LAMOTRIGINE [Concomitant]
     Active Substance: LAMOTRIGINE
     Indication: Drug therapy
  13. BRIVARACETAM [Concomitant]
     Active Substance: BRIVARACETAM
     Indication: Epilepsy
     Dosage: 25 MILLIGRAM, 2X/DAY (BID)
     Route: 065
  14. BRIVARACETAM [Concomitant]
     Active Substance: BRIVARACETAM
     Indication: Psychogenic seizure
     Dosage: 100 MILLIGRAM, ONCE DAILY (QD)
     Route: 065
  15. TOPIRAMATE [Concomitant]
     Active Substance: TOPIRAMATE
     Indication: Epilepsy
     Dosage: UNK UNK, QD
     Route: 065
  16. TOPIRAMATE [Concomitant]
     Active Substance: TOPIRAMATE
     Indication: Psychogenic seizure

REACTIONS (4)
  - Erectile dysfunction [Unknown]
  - Weight increased [Unknown]
  - Drug ineffective [Unknown]
  - Product use in unapproved indication [Unknown]
